FAERS Safety Report 5354551-6 (Version None)
Quarter: 2007Q2

REPORT INFORMATION
  Report Type: 
  Country: None (occurrence: None)
  Receive Date: 20070608
  Receipt Date: 20070523
  Transmission Date: 20071010
  Serious: Yes (Hospitalization)
  Sender: FDA-Public Use
  Company Number: DSA_29973_2007

PATIENT
  Sex: Female

DRUGS (17)
  1. TEMESTA (TEMESTA) (NOT SPECIFIED) [Suspect]
     Dosage: (4 MG QD ORAL)
     Route: 048
     Dates: start: 20060918, end: 20060918
  2. TEMESTA (TEMESTA) (NOT SPECIFIED) [Suspect]
     Dosage: (3 MG QD ORAL)
     Route: 048
     Dates: start: 20060919, end: 20060926
  3. TEMESTA (TEMESTA) (NOT SPECIFIED) [Suspect]
     Dosage: (2 MG QD ORAL)
     Route: 048
     Dates: start: 20060927, end: 20060927
  4. TEMESTA (TEMESTA) (NOT SPECIFIED) [Suspect]
     Dosage: (1.5 MG QD)
     Dates: start: 20060928, end: 20061002
  5. TEMESTA (TEMESTA) (NOT SPECIFIED) [Suspect]
     Dosage: (2 MG QD ORAL)
     Route: 048
     Dates: start: 20061003
  6. ASPIRIN [Suspect]
     Dosage: (100 MG QD ORAL)
     Route: 048
     Dates: start: 20060910
  7. BELOC ZOK (BELOC ZOK) [Suspect]
     Dosage: (25 MG QD ORAL)
     Route: 048
     Dates: start: 20060913
  8. ORFIRIL /00228502/ (ORFIRIL) (NOT SPECIFIED) [Suspect]
     Dosage: SEE IMAGE
     Route: 048
     Dates: start: 20060913, end: 20060913
  9. ORFIRIL /00228502/ (ORFIRIL) (NOT SPECIFIED) [Suspect]
     Dosage: SEE IMAGE
     Route: 048
     Dates: start: 20060914, end: 20060915
  10. ORFIRIL /00228502/ (ORFIRIL) (NOT SPECIFIED) [Suspect]
     Dosage: (1500 MG QD ORAL)
     Route: 048
     Dates: start: 20060916, end: 20060919
  11. ORFIRIL /00228502/ (ORFIRIL) (NOT SPECIFIED) [Suspect]
     Dosage: SEE IMAGE
     Route: 048
     Dates: start: 20060920, end: 20060924
  12. ORFIRIL /00228502/ (ORFIRIL) (NOT SPECIFIED) [Suspect]
     Dosage: SEE IMAGE
     Route: 048
     Dates: start: 20060925
  13. RISPERDAL [Suspect]
     Dosage: (4 MG QD ORAL)
     Route: 048
     Dates: start: 20020101
  14. AKINETON [Concomitant]
  15. ZANTIC [Concomitant]
  16. MAGNESIOCARD [Concomitant]
  17. COVERSUM /00790701/ [Concomitant]

REACTIONS (7)
  - DRUG INTERACTION [None]
  - FALL [None]
  - FOOT FRACTURE [None]
  - GAIT DISTURBANCE [None]
  - HYPOTENSION [None]
  - SEDATION [None]
  - VERTIGO [None]
